FAERS Safety Report 14099135 (Version 2)
Quarter: 2017Q4

REPORT INFORMATION
  Report Type: Spontaneous
  Country: US (occurrence: US)
  Receive Date: 20171017
  Receipt Date: 20171023
  Transmission Date: 20180321
  Serious: Yes (Other)
  Sender: FDA-Public Use
  Company Number: US-RECKITT BENCKISER HEALTHCARE INT LIMITED-RB-96365-2017

PATIENT
  Age: 69 Year
  Sex: Female

DRUGS (1)
  1. CLEARASIL ULTRA RAPID ACTION TREATMENT CREAM (BENZOYL PEROXIDE) [Suspect]
     Active Substance: BENZOYL PEROXIDE
     Indication: ACNE
     Dosage: UNK, SINGLE
     Route: 061
     Dates: start: 20170806, end: 20170806

REACTIONS (6)
  - Dry skin [Recovering/Resolving]
  - Eye oedema [Recovering/Resolving]
  - Swelling face [Recovering/Resolving]
  - Skin wrinkling [Recovering/Resolving]
  - Eye swelling [Recovering/Resolving]
  - Erythema [Recovering/Resolving]

NARRATIVE: CASE EVENT DATE: 20170807
